FAERS Safety Report 6693302-X (Version None)
Quarter: 2010Q2

REPORT INFORMATION
  Report Type: 
  Country: None (occurrence: None)
  Receive Date: 20100422
  Receipt Date: 20100414
  Transmission Date: 20101027
  Serious: Yes (Other)
  Sender: FDA-Public Use
  Company Number: FR-AMGEN-QUU406272

PATIENT

DRUGS (1)
  1. NPLATE [Suspect]
     Indication: PRE-EXISTING DISEASE
     Dates: start: 20100301

REACTIONS (3)
  - BONE MARROW RETICULIN FIBROSIS [None]
  - HAEMORRHAGE [None]
  - PLATELET COUNT DECREASED [None]
